FAERS Safety Report 4457515-X (Version None)
Quarter: 2004Q3

REPORT INFORMATION
  Report Type: 
  Country: None (occurrence: None)
  Receive Date: 20040922
  Receipt Date: 20040914
  Transmission Date: 20050211
  Serious: Yes (Hospitalization, Disabling)
  Sender: FDA-Public Use
  Company Number: 002#1#2004-00214

PATIENT
  Age: 50 Year
  Sex: Female
  Weight: 56.6996 kg

DRUGS (1)
  1. PEG-3350-+-ELECTROLYTES-FOR-ORAL-SOLUTION (POLYETHYLENE GLYCOL 3350) [Suspect]
     Indication: COLONOSCOPY
     Dosage: 41, 1ONCE, ORAL
     Route: 048
     Dates: start: 20040308, end: 20040308

REACTIONS (11)
  - ABASIA [None]
  - ABDOMINAL DISTENSION [None]
  - BLOOD MAGNESIUM DECREASED [None]
  - BLOOD POTASSIUM DECREASED [None]
  - FATIGUE [None]
  - FIBROMYALGIA [None]
  - INSOMNIA [None]
  - MYOCARDIAL INFARCTION [None]
  - NERVE INJURY [None]
  - OEDEMA PERIPHERAL [None]
  - RHABDOMYOLYSIS [None]
